FAERS Safety Report 7631670-2 (Version None)
Quarter: 2011Q3

REPORT INFORMATION
  Report Type: 
  Country: None (occurrence: None)
  Receive Date: 20110725
  Receipt Date: 20110214
  Transmission Date: 20111222
  Serious: No
  Sender: FDA-Public Use
  Company Number: US-BRISTOL-MYERS SQUIBB COMPANY-15549223

PATIENT
  Age: 8 Decade
  Sex: Male

DRUGS (11)
  1. COUMADIN [Suspect]
  2. PLAVIX [Concomitant]
     Dosage: FOR 2-3 YEARS
  3. COREG [Concomitant]
  4. ALDACTONE [Concomitant]
  5. RANEXA [Concomitant]
  6. ISOSORBIDE DINITRATE [Concomitant]
  7. SPIRONOLACTONE [Concomitant]
  8. AMLODIPINE [Concomitant]
  9. VALIUM [Concomitant]
  10. HYDROCHLOROTHIAZIDE [Concomitant]
  11. ASPIRIN [Concomitant]

REACTIONS (1)
  - CHEST DISCOMFORT [None]
